FAERS Safety Report 6516144-4 (Version None)
Quarter: 2009Q4

REPORT INFORMATION
  Report Type: 
  Country: None (occurrence: None)
  Receive Date: 20091223
  Receipt Date: 20091211
  Transmission Date: 20100525
  Serious: Yes (Hospitalization)
  Sender: FDA-Public Use
  Company Number: AT-CELGENEUS-009-C5013-09111845

PATIENT
  Sex: Female
  Weight: 60.5 kg

DRUGS (15)
  1. CC-5013 [Suspect]
     Indication: MULTIPLE MYELOMA
     Route: 048
     Dates: start: 20091111, end: 20091122
  2. CC-5013 [Suspect]
     Route: 048
     Dates: start: 20090429
  3. CC-5013 [Suspect]
     Route: 048
     Dates: start: 20091210
  4. DEXAMETHASONE TAB [Suspect]
     Indication: MULTIPLE MYELOMA
     Route: 065
     Dates: start: 20091111, end: 20091122
  5. DEXAMETHASONE TAB [Suspect]
     Route: 065
     Dates: start: 20090429
  6. DEXAMETHASONE TAB [Suspect]
     Route: 065
     Dates: start: 20091210
  7. PANTOPRAZOLE [Concomitant]
     Indication: PROPHYLAXIS AGAINST GASTROINTESTINAL ULCER
     Route: 048
     Dates: start: 20090401
  8. ZOMETA [Concomitant]
     Route: 051
     Dates: start: 20090428
  9. VOLTAREN [Concomitant]
     Indication: PAIN
     Route: 048
     Dates: start: 20090101
  10. COMBI KALZ [Concomitant]
     Indication: OSTEOPOROSIS
     Route: 048
     Dates: start: 20090301
  11. RAMIPRIL [Concomitant]
     Indication: HYPERTENSION
     Route: 048
     Dates: start: 20090527
  12. DIBONDRIN [Concomitant]
     Route: 048
     Dates: start: 20090902
  13. ASPIRIN [Concomitant]
     Indication: THROMBOSIS PROPHYLAXIS
     Route: 048
     Dates: start: 20090909
  14. VOLTAREN [Concomitant]
     Dosage: 2-4 GRAMS
     Route: 062
     Dates: start: 20091014
  15. SPIRIVA [Concomitant]
     Route: 048
     Dates: start: 20090819

REACTIONS (11)
  - ATRIAL FIBRILLATION [None]
  - BLOOD CHLORIDE DECREASED [None]
  - BLOOD CHOLESTEROL INCREASED [None]
  - BLOOD MAGNESIUM DECREASED [None]
  - BLOOD POTASSIUM DECREASED [None]
  - BLOOD SODIUM DECREASED [None]
  - BLOOD TRIGLYCERIDES INCREASED [None]
  - HYPERTENSIVE CRISIS [None]
  - INFLAMMATION [None]
  - RESPIRATORY FAILURE [None]
  - RESPIRATORY TRACT INFECTION [None]
